FAERS Safety Report 12244976 (Version 1)
Quarter: 2016Q2

REPORT INFORMATION
  Report Type: Report from Study
  Country: CA (occurrence: CA)
  Receive Date: 20160407
  Receipt Date: 20160407
  Transmission Date: 20160815
  Serious: Yes (Other)
  Sender: FDA-Public Use
  Company Number: PHHY2016CA044366

PATIENT
  Age: 55 Year
  Sex: Female

DRUGS (1)
  1. ZOMETA [Suspect]
     Active Substance: ZOLEDRONIC ACID
     Indication: BREAST CANCER
     Dosage: 4 MG, EVERY 6 MONTHS.
     Route: 042
     Dates: start: 20141004

REACTIONS (3)
  - Fall [Unknown]
  - Radial nerve palsy [Unknown]
  - Humerus fracture [Unknown]

NARRATIVE: CASE EVENT DATE: 20151017
